FAERS Safety Report 21368632 (Version 4)
Quarter: 2022Q3

REPORT INFORMATION
  Report Type: Spontaneous
  Country: US (occurrence: US)
  Receive Date: 20220923
  Receipt Date: 20220930
  Transmission Date: 20221027
  Serious: Yes (Other)
  Sender: FDA-Public Use
  Company Number: US-NOVARTISTESTPH-NVSC2022US214866

PATIENT
  Age: 32 Year
  Sex: Female

DRUGS (3)
  1. LORAZEPAM [Suspect]
     Active Substance: LORAZEPAM
     Indication: Anxiety
     Dosage: 5 MG, PRN
     Route: 048
  2. AZITHROMYCIN [Concomitant]
     Active Substance: AZITHROMYCIN
     Indication: Sinusitis
     Dosage: UNK, STOPPED : FEW DAYS LATER
     Route: 048
     Dates: start: 20210902
  3. METHYLPREDNISOLONE [Concomitant]
     Active Substance: METHYLPREDNISOLONE
     Indication: Sinusitis
     Dosage: UNK
     Route: 048
     Dates: start: 20210902, end: 20210907

REACTIONS (8)
  - Neuropathy peripheral [Not Recovered/Not Resolved]
  - Ulnar nerve injury [Not Recovered/Not Resolved]
  - Feeling abnormal [Recovered/Resolved]
  - Pain in extremity [Unknown]
  - Paraesthesia [Unknown]
  - Cardiovascular disorder [Unknown]
  - Pain [Unknown]
  - Dizziness [Unknown]

NARRATIVE: CASE EVENT DATE: 20210802
